FAERS Safety Report 5220954-3 (Version None)
Quarter: 2007Q1

REPORT INFORMATION
  Report Type: 
  Country: None (occurrence: None)
  Receive Date: 20070123
  Receipt Date: 20070109
  Transmission Date: 20070707
  Serious: Yes (Disabling)
  Sender: FDA-Public Use
  Company Number: 2007RR-05168

PATIENT
  Age: 76 Year
  Sex: Male
  Weight: 100 kg

DRUGS (5)
  1. LISINOPRIL [Suspect]
     Indication: HYPERTENSION
     Dosage: 15 MG, ORAL
     Route: 048
     Dates: start: 20060101, end: 20061201
  2. ALLOPURINOL [Concomitant]
  3. ATENOLOL [Concomitant]
  4. GLICLAZIDE (GLICLAZIDE) [Concomitant]
  5. LOSARTAN POSTASSIUM [Concomitant]

REACTIONS (4)
  - GOUT [None]
  - OEDEMA PERIPHERAL [None]
  - PAIN [None]
  - VASCULITIS [None]
